FAERS Safety Report 7903348-9 (Version None)
Quarter: 2011Q4

REPORT INFORMATION
  Report Type: 
  Country: None (occurrence: None)
  Receive Date: 20111109
  Receipt Date: 20111104
  Transmission Date: 20120403
  Serious: No
  Sender: FDA-Public Use
  Company Number: US-PFIZER INC-2011270939

PATIENT
  Age: 71 Year
  Sex: Male
  Weight: 102 kg

DRUGS (10)
  1. FINASTERIDE [Concomitant]
     Dosage: 5 MG,DAILY
  2. ATENOLOL [Concomitant]
     Indication: CARDIAC DISORDER
     Dosage: 50 MG,DAILY
  3. ISOSORBIDE [Concomitant]
     Indication: CARDIAC DISORDER
     Dosage: 50 MG,DAILY
  4. FUROSEMIDE [Concomitant]
     Indication: DIURETIC THERAPY
     Dosage: 40 MG,DAILY
  5. NITROGLYCERIN [Suspect]
     Indication: CHEST PAIN
     Dosage: UNK
     Dates: start: 20110301, end: 20110301
  6. SIMVASTATIN [Concomitant]
     Indication: BLOOD CHOLESTEROL ABNORMAL
     Dosage: 40 MG,DAILY
  7. ASCORBIC ACID [Concomitant]
     Dosage: 1000 MG,DAILY
  8. TERBINAFINE [Concomitant]
     Indication: ONYCHOMYCOSIS
     Dosage: 250 MG,DAILY
  9. MACRODANTIN [Concomitant]
     Indication: URINARY TRACT INFECTION
     Dosage: 50 MG, 2X/DAY
  10. ACETYLSALICYLIC ACID [Concomitant]
     Dosage: 81 MG,DAILY

REACTIONS (1)
  - DRUG INEFFECTIVE [None]
